FAERS Safety Report 16348306 (Version 2)
Quarter: 2019Q2

REPORT INFORMATION
  Report Type: Spontaneous
  Country: US (occurrence: US)
  Receive Date: 20190523
  Receipt Date: 20190610
  Transmission Date: 20190711
  Serious: No
  Sender: FDA-Public Use
  Company Number: US-009507513-1905USA007648

PATIENT
  Age: 42 Year
  Sex: Female
  Weight: 141.95 kg

DRUGS (3)
  1. NEXPLANON [Suspect]
     Active Substance: ETONOGESTREL
     Indication: CONTRACEPTION
     Dosage: 1 ROD EVERY 3 YEARS
     Route: 059
     Dates: start: 2009
  2. NEXPLANON [Suspect]
     Active Substance: ETONOGESTREL
     Dosage: 1 ROD EVERY 3 YEARS
     Route: 059
     Dates: end: 20190430
  3. NEXPLANON [Suspect]
     Active Substance: ETONOGESTREL
     Dosage: 1 ROD EVERY 3 YEARS
     Route: 059
     Dates: start: 20190430, end: 20190513

REACTIONS (4)
  - Mobility decreased [Recovering/Resolving]
  - Implant site cellulitis [Recovered/Resolved]
  - Implant site fibrosis [Recovering/Resolving]
  - Device expulsion [Unknown]

NARRATIVE: CASE EVENT DATE: 20190509
